FAERS Safety Report 6962540-0 (Version None)
Quarter: 2010Q3

REPORT INFORMATION
  Report Type: 
  Country: None (occurrence: None)
  Receive Date: 20100902
  Receipt Date: 20100827
  Transmission Date: 20110219
  Serious: Yes (Other)
  Sender: FDA-Public Use
  Company Number: US-B.I. PHARMACEUTICALS,INC./RIDGEFIELD-2010-BP-05776BP

PATIENT
  Age: 72 Year
  Sex: Male

DRUGS (5)
  1. AGGRENOX [Suspect]
     Indication: CEREBROVASCULAR ACCIDENT
     Dosage: 2 ANZ
     Route: 048
     Dates: start: 20080101
  2. AGGRENOX [Suspect]
     Indication: ANTICOAGULANT THERAPY
  3. KEPPRA [Concomitant]
     Indication: MIGRAINE
  4. LIPITOR [Concomitant]
     Indication: BLOOD CHOLESTEROL INCREASED
  5. MULTI-VITAMINS [Concomitant]
     Indication: VITAMIN SUPPLEMENTATION

REACTIONS (6)
  - CHOKING [None]
  - OBSTRUCTIVE AIRWAYS DISORDER [None]
  - PRODUCT QUALITY ISSUE [None]
  - THROAT IRRITATION [None]
  - VOMITING [None]
  - WRONG TECHNIQUE IN DRUG USAGE PROCESS [None]
